FAERS Safety Report 5051596-0 (Version None)
Quarter: 2006Q2

REPORT INFORMATION
  Report Type: 
  Country: None (occurrence: None)
  Receive Date: 20060614
  Receipt Date: 20060306
  Transmission Date: 20061013
  Serious: Yes (Other)
  Sender: FDA-Public Use
  Company Number: 439405

PATIENT
  Age: 83 Year
  Sex: Female
  Weight: 47.6 kg

DRUGS (9)
  1. BONIVA [Suspect]
     Indication: DRUG USE FOR UNKNOWN INDICATION
     Dosage: 150 MG   1 PER MONTH   ORAL
     Route: 048
     Dates: start: 20060215
  2. IMDUR [Suspect]
     Indication: SICK SINUS SYNDROME
     Dosage: 30 MG  1 PER DAY  ORAL
     Route: 048
     Dates: start: 20060215
  3. TOPROL-XL [Suspect]
     Indication: SICK SINUS SYNDROME
     Dosage: 150 MG  1 PER 1 DAY  ORAL
     Route: 048
     Dates: start: 20060215
  4. LASIX [Concomitant]
  5. SERTRALINE HCL [Concomitant]
  6. FLUVASTATIN SODIUM (FLUVASTATIN SODIUM) [Concomitant]
  7. ASPIRIN [Concomitant]
  8. CALCIUM/VITAMIN D (CALCIUM/VITAMIND NOS) [Concomitant]
  9. CALCIUM (CALCIUM) [Concomitant]

REACTIONS (3)
  - ABDOMINAL DISTENSION [None]
  - FLATULENCE [None]
  - WEIGHT INCREASED [None]
